FAERS Safety Report 11650439 (Version 1)
Quarter: 2015Q4

REPORT INFORMATION
  Report Type: Spontaneous
  Country: US (occurrence: US)
  Receive Date: 20151021
  Receipt Date: 20151021
  Transmission Date: 20160304
  Serious: Yes (Other)
  Sender: FDA-Public Use
  Company Number: US-ASTRAZENECA-2013SE68140

PATIENT
  Age: 567 Month
  Sex: Female
  Weight: 71.2 kg

DRUGS (12)
  1. BYDUREON [Suspect]
     Active Substance: EXENATIDE
     Indication: TYPE 2 DIABETES MELLITUS
     Dosage: 2 MG, ONCE A WEEK, BYDUREON PEN
     Route: 058
  2. GLIMEPIRIDE. [Concomitant]
     Active Substance: GLIMEPIRIDE
     Indication: TYPE 2 DIABETES MELLITUS
  3. METFORMIN [Concomitant]
     Active Substance: METFORMIN HYDROCHLORIDE
     Indication: TYPE 2 DIABETES MELLITUS
  4. PREDNISONE. [Concomitant]
     Active Substance: PREDNISONE
     Indication: EYE DISORDER
  5. METOPROLOL [Concomitant]
     Active Substance: METOPROLOL
     Route: 048
  6. DEXILANT [Concomitant]
     Active Substance: DEXLANSOPRAZOLE
     Indication: GASTROOESOPHAGEAL REFLUX DISEASE
     Route: 048
  7. BYDUREON [Suspect]
     Active Substance: EXENATIDE
     Indication: TYPE 2 DIABETES MELLITUS
     Dosage: 2 MG, ONCE A WEEK, BYDUREON KIT
     Route: 058
     Dates: start: 20120622
  8. BYDUREON [Suspect]
     Active Substance: EXENATIDE
     Indication: TYPE 2 DIABETES MELLITUS
     Dosage: 2 MG, ONCE A WEEK, BYDUREON KIT
     Route: 058
     Dates: start: 20130121
  9. LINZESS [Concomitant]
     Active Substance: LINACLOTIDE
     Route: 048
  10. VALSARTAN. [Concomitant]
     Active Substance: VALSARTAN
  11. BYDUREON [Suspect]
     Active Substance: EXENATIDE
     Indication: TYPE 2 DIABETES MELLITUS
     Route: 058
  12. CRESTOR [Suspect]
     Active Substance: ROSUVASTATIN CALCIUM
     Route: 048

REACTIONS (14)
  - Product quality issue [Unknown]
  - Macular degeneration [Not Recovered/Not Resolved]
  - Drug dose omission [Unknown]
  - Injection site nodule [Recovering/Resolving]
  - Lethargy [Recovered/Resolved]
  - Drug dose omission [Recovered/Resolved]
  - Incorrect dose administered by device [Unknown]
  - Device issue [Unknown]
  - Weight decreased [Unknown]
  - Malaise [Recovered/Resolved]
  - Injection site pain [Recovered/Resolved]
  - Injection site extravasation [Unknown]
  - Incorrect product storage [Unknown]
  - Blood glucose increased [Recovered/Resolved]

NARRATIVE: CASE EVENT DATE: 201207
